FAERS Safety Report 21552332 (Version 2)
Quarter: 2022Q4

REPORT INFORMATION
  Report Type: Spontaneous
  Country: US (occurrence: US)
  Receive Date: 20221104
  Receipt Date: 20221229
  Transmission Date: 20230112
  Serious: Yes (Death, Hospitalization, Other)
  Sender: FDA-Public Use
  Company Number: US-NOVOPROD-973489

PATIENT
  Age: 85 Year
  Sex: Male

DRUGS (1)
  1. LEVEMIR [Suspect]
     Active Substance: INSULIN DETEMIR
     Indication: Type 2 diabetes mellitus
     Dosage: 50 IU, QD

REACTIONS (8)
  - Renal failure [Fatal]
  - Cardiac failure congestive [Fatal]
  - Pulmonary oedema [Fatal]
  - Full blood count decreased [Unknown]
  - Hypoglycaemic coma [Unknown]
  - Asthenia [Not Recovered/Not Resolved]
  - COVID-19 [Unknown]
  - Respiratory rate increased [Unknown]

NARRATIVE: CASE EVENT DATE: 20220101
